FAERS Safety Report 9113938 (Version 1)
Quarter: 2013Q1

REPORT INFORMATION
  Report Type: Spontaneous
  Country: US (occurrence: US)
  Receive Date: 20130208
  Receipt Date: 20130208
  Transmission Date: 20140127
  Serious: Yes (Death, Other)
  Sender: FDA-Public Use
  Company Number: CHPA2013US002528

PATIENT
  Age: 66 Year
  Sex: Female

DRUGS (11)
  1. ACETAMINOPHEN (PARACETAMOL) [Suspect]
     Dosage: UNK, UNK
     Route: 048
  2. LITHIUM [Suspect]
     Dosage: UNK, UNK
     Route: 048
  3. ESCITALOPRAM [Suspect]
     Dosage: UNK, UNK
     Route: 048
  4. METHYLPHENIDATE [Suspect]
     Dosage: UNK, UNK
     Route: 048
  5. ARIPIPRAZOLE [Suspect]
     Dosage: UNK, UNK
     Route: 048
  6. SIMVASTATIN [Suspect]
     Dosage: UNK, UNK
     Route: 048
  7. VALACICLOVIR [Suspect]
     Dosage: UNK, UNK
     Route: 048
  8. PROPOXYPHENE [Suspect]
     Dosage: UNK, UNK
     Route: 048
  9. HYDROCODONE [Suspect]
     Dosage: UNK, UNK
     Route: 048
  10. OXYCODONE [Suspect]
     Dosage: UNK, UNK
     Route: 048
  11. TRIAZOLAM [Suspect]
     Dosage: UNK, UNK
     Route: 048

REACTIONS (2)
  - Completed suicide [Fatal]
  - Cardio-respiratory arrest [Unknown]
